FAERS Safety Report 9596345 (Version 1)
Quarter: 2013Q4

REPORT INFORMATION
  Report Type: Spontaneous
  Country: US (occurrence: US)
  Receive Date: 20131004
  Receipt Date: 20131004
  Transmission Date: 20140711
  Serious: No
  Sender: FDA-Public Use
  Company Number: US-VIIV HEALTHCARE LIMITED-A1004052A

PATIENT
  Sex: Male

DRUGS (1)
  1. SELZENTRY [Suspect]
     Route: 050

REACTIONS (1)
  - Drug administration error [Unknown]
